FAERS Safety Report 5144887-6 (Version None)
Quarter: 2006Q4

REPORT INFORMATION
  Report Type: 
  Country: None (occurrence: None)
  Receive Date: 20061107
  Receipt Date: 20061025
  Transmission Date: 20070319
  Serious: Yes (Other)
  Sender: FDA-Public Use
  Company Number: HQWYE694627OCT06

PATIENT
  Sex: Female
  Weight: 36.32 kg

DRUGS (6)
  1. ENBREL [Suspect]
     Indication: RHEUMATOID ARTHRITIS
     Route: 058
     Dates: start: 20041122, end: 20060501
  2. ENBREL [Suspect]
     Route: 058
  3. METHOTREXATE [Suspect]
     Indication: RHEUMATOID ARTHRITIS
  4. IBUPROFEN [Concomitant]
     Indication: ANALGESIC EFFECT
     Dosage: UP TO 2 CAPSULES DAILY
  5. DEXTROPROPOXYPHENE [Concomitant]
     Indication: ANALGESIC EFFECT
     Dosage: UP TO 2 CAPSULES DAILY
  6. PREDNISONE TAB [Concomitant]

REACTIONS (6)
  - ANAEMIA [None]
  - EYE HAEMORRHAGE [None]
  - HYPERSENSITIVITY [None]
  - PLATELET COUNT DECREASED [None]
  - SWELLING [None]
  - WHITE BLOOD CELL COUNT DECREASED [None]
